FAERS Safety Report 11909518 (Version 7)
Quarter: 2018Q4

REPORT INFORMATION
  Report Type: Report from Study
  Country: US (occurrence: US)
  Receive Date: 20160112
  Receipt Date: 20181018
  Transmission Date: 20190204
  Serious: Yes (Hospitalization, Other)
  Sender: FDA-Public Use
  Company Number: US-UCBSA-2016000479

PATIENT
  Age: 32 Year
  Sex: Female
  Weight: 68 kg

DRUGS (57)
  1. KEPPRA [Suspect]
     Active Substance: LEVETIRACETAM
     Dosage: 1500 MG, 2X/DAY (BID)
     Dates: start: 20110726, end: 201109
  2. KEPPRA XR [Suspect]
     Active Substance: LEVETIRACETAM
     Dosage: 2000 MG, 2X/DAY (BID)
     Dates: start: 2014
  3. COUMADIN [Suspect]
     Active Substance: WARFARIN SODIUM
     Indication: CEREBROVASCULAR ACCIDENT
     Dosage: UNK, DAILY
     Route: 048
     Dates: start: 1988
  4. SYNTHROID [Concomitant]
     Active Substance: LEVOTHYROXINE SODIUM
     Indication: THYROID DISORDER
  5. VITAMIN D [Concomitant]
     Active Substance: CHOLECALCIFEROL
     Indication: PRODUCT USED FOR UNKNOWN INDICATION
  6. KEPPRA [Suspect]
     Active Substance: LEVETIRACETAM
     Dosage: 3000 MG AM AND 1500 PM, 2X/DAY (BID)
     Dates: start: 20110725, end: 20110725
  7. KEPPRA [Suspect]
     Active Substance: LEVETIRACETAM
     Dosage: 2500 MG, 2X/DAY (BID)
     Route: 048
     Dates: start: 20160110
  8. TRILEPTAL [Suspect]
     Active Substance: OXCARBAZEPINE
     Indication: EPILEPSY
     Dosage: 600 MG, DAILY
     Dates: start: 20160108, end: 201601
  9. TRILEPTAL [Suspect]
     Active Substance: OXCARBAZEPINE
     Dosage: 300 MG
     Dates: start: 201601, end: 201601
  10. TRILEPTAL [Suspect]
     Active Substance: OXCARBAZEPINE
     Dosage: 150 MG, UNK
     Dates: start: 201601, end: 20160113
  11. ATIVAN [Concomitant]
     Active Substance: LORAZEPAM
     Indication: SEIZURE
  12. DETROL LA [Concomitant]
     Active Substance: TOLTERODINE TARTRATE
     Indication: PRODUCT USED FOR UNKNOWN INDICATION
  13. PNEUMOCOCCAL CONJUGATE VACCINE [Concomitant]
     Active Substance: PNEUMOCOCCAL VACCINE POLYVALENT
     Indication: PRODUCT USED FOR UNKNOWN INDICATION
  14. KEPPRA [Suspect]
     Active Substance: LEVETIRACETAM
     Indication: FOCAL DYSCOGNITIVE SEIZURES
     Dosage: 750 MG, 2X/DAY (BID)
     Dates: start: 20110619, end: 201107
  15. KEPPRA [Suspect]
     Active Substance: LEVETIRACETAM
     Dosage: 1500 MG, 2X/DAY (BID)
     Dates: start: 201110
  16. KEPPRA [Suspect]
     Active Substance: LEVETIRACETAM
     Dosage: 2000 MG, 2X/DAY (BID); 500 MG 4 TABLETSTWICE A DAY
     Route: 048
     Dates: end: 20160105
  17. REVATIO [Suspect]
     Active Substance: SILDENAFIL CITRATE
     Indication: GAIT DISTURBANCE
     Dosage: 3 MG, 2X/DAY (BID)
     Route: 048
     Dates: start: 2010
  18. COUMADIN [Suspect]
     Active Substance: WARFARIN SODIUM
     Indication: THROMBOSIS
     Dosage: 2.5 TO 3.75 DAILY
     Route: 048
  19. CALCIUM [Concomitant]
     Active Substance: CALCIUM
     Indication: PRODUCT USED FOR UNKNOWN INDICATION
  20. LOMOTIL [Concomitant]
     Active Substance: ATROPINE SULFATE\DIPHENOXYLATE HYDROCHLORIDE
     Indication: PRODUCT USED FOR UNKNOWN INDICATION
  21. PREDNISONE. [Concomitant]
     Active Substance: PREDNISONE
     Indication: PRODUCT USED FOR UNKNOWN INDICATION
  22. CALCIUM + D3 [Concomitant]
     Active Substance: CALCIUM\CHOLECALCIFEROL
     Indication: PRODUCT USED FOR UNKNOWN INDICATION
  23. LEXAPRO [Concomitant]
     Active Substance: ESCITALOPRAM OXALATE
     Indication: DEPRESSION
  24. INFLUENZA [Concomitant]
     Active Substance: INFLUENZA VIRUS VACCINE
     Indication: PRODUCT USED FOR UNKNOWN INDICATION
  25. LACOSAMIDE. [Suspect]
     Active Substance: LACOSAMIDE
     Dosage: 50 MG
     Route: 048
     Dates: start: 20110921, end: 201110
  26. KEPPRA XR [Suspect]
     Active Substance: LEVETIRACETAM
     Indication: SEIZURE
     Dosage: 1500 MG, 2X/DAY (BID)
     Dates: start: 2011
  27. ONFI [Suspect]
     Active Substance: CLOBAZAM
     Indication: EPILEPSY
     Dosage: 10 MG, 2X/DAY (BID)
     Dates: start: 20160108, end: 201601
  28. DIPHENOXYLATE/ATROPINE [Concomitant]
     Active Substance: ATROPINE\DIPHENOXYLATE
     Indication: PRODUCT USED FOR UNKNOWN INDICATION
  29. LACOSAMIDE. [Suspect]
     Active Substance: LACOSAMIDE
     Dosage: 275 MG, 2X/DAY (BID)
     Route: 048
     Dates: start: 2012, end: 2012
  30. LACOSAMIDE. [Suspect]
     Active Substance: LACOSAMIDE
     Dosage: 200 MG, 2X/DAY (BID)
     Route: 048
     Dates: start: 2012
  31. ONFI [Suspect]
     Active Substance: CLOBAZAM
     Dosage: 20 MG, 2X/DAY (BID)
     Dates: start: 20160109
  32. REVATIO [Suspect]
     Active Substance: SILDENAFIL CITRATE
     Indication: RAYNAUD^S PHENOMENON
  33. LIPITOR [Concomitant]
     Active Substance: ATORVASTATIN CALCIUM
     Indication: PRODUCT USED FOR UNKNOWN INDICATION
  34. LEVOTHYROXINE. [Concomitant]
     Active Substance: LEVOTHYROXINE
     Indication: PRODUCT USED FOR UNKNOWN INDICATION
  35. OYSTER SHELL CACIUM WITH VITAMIN D [Concomitant]
     Indication: PRODUCT USED FOR UNKNOWN INDICATION
  36. ACETAMINOPHEN AND CODEINE [Concomitant]
     Active Substance: ACETAMINOPHEN\CODEINE PHOSPHATE
     Indication: PRODUCT USED FOR UNKNOWN INDICATION
  37. KEPPRA [Suspect]
     Active Substance: LEVETIRACETAM
     Dosage: 1000 MG, 2X/DAY (BID)
     Dates: start: 20110722, end: 201107
  38. REVATIO [Suspect]
     Active Substance: SILDENAFIL CITRATE
     Indication: CARDIOVASCULAR DISORDER
     Dosage: 10 MG, 3X/DAY (TID)
     Route: 048
     Dates: start: 2008
  39. RAPAMUNE [Suspect]
     Active Substance: SIROLIMUS
     Dosage: 3 MG, 2X/DAY (BID)
     Route: 048
  40. LORAZEPAM. [Concomitant]
     Active Substance: LORAZEPAM
     Indication: PRODUCT USED FOR UNKNOWN INDICATION
  41. FOLIC ACID. [Concomitant]
     Active Substance: FOLIC ACID
     Indication: PRODUCT USED FOR UNKNOWN INDICATION
  42. PREVACID [Concomitant]
     Active Substance: LANSOPRAZOLE
     Indication: ANTACID THERAPY
  43. LACOSAMIDE. [Suspect]
     Active Substance: LACOSAMIDE
     Dosage: 200 MG, UNK
     Route: 042
     Dates: start: 20160113, end: 20160113
  44. LACOSAMIDE. [Suspect]
     Active Substance: LACOSAMIDE
     Dosage: 200 MG, 2X/DAY (BID)
     Route: 048
     Dates: start: 20160114
  45. KEPPRA [Suspect]
     Active Substance: LEVETIRACETAM
     Dosage: 4000 MG, 2X/DAY (BID)
     Dates: start: 20110906, end: 201109
  46. RAPAMUNE [Suspect]
     Active Substance: SIROLIMUS
     Indication: PROPHYLAXIS
     Dosage: 3 MG, ONCE DAILY (QD)
     Route: 048
     Dates: start: 20061011
  47. LOVENOX [Concomitant]
     Active Substance: ENOXAPARIN SODIUM
     Indication: THROMBOSIS
  48. PROGRAF [Concomitant]
     Active Substance: TACROLIMUS\TACROLIMUS ANHYDROUS
     Indication: PRODUCT USED FOR UNKNOWN INDICATION
  49. LACOSAMIDE. [Suspect]
     Active Substance: LACOSAMIDE
     Indication: EPILEPSY
     Dosage: 275 MG, 2X/DAY (BID)
     Route: 048
     Dates: start: 201108
  50. LACOSAMIDE. [Suspect]
     Active Substance: LACOSAMIDE
     Dosage: 50 MG 12/DAILY
     Route: 048
     Dates: start: 20111027
  51. LACOSAMIDE. [Suspect]
     Active Substance: LACOSAMIDE
     Dosage: 150 MG, 2X/DAY (BID)
     Route: 048
     Dates: start: 20120626, end: 2012
  52. LACOSAMIDE. [Suspect]
     Active Substance: LACOSAMIDE
     Dosage: 275 MG, 2X/DAY (BID)
     Route: 048
     Dates: start: 2014, end: 20160106
  53. KEPPRA [Suspect]
     Active Substance: LEVETIRACETAM
     Indication: GENERALISED TONIC-CLONIC SEIZURE
     Dosage: 500 MG, 2X/DAY (BID)
     Dates: start: 20110308, end: 201106
  54. KEPPRA [Suspect]
     Active Substance: LEVETIRACETAM
     Dosage: 1750 MG, 2X/DAY (BID)
     Dates: start: 2012
  55. COUMADIN [Suspect]
     Active Substance: WARFARIN SODIUM
     Indication: INTERNATIONAL NORMALISED RATIO ABNORMAL
     Dosage: 2.5 MG, ONCE DAILY (QD)
     Route: 048
     Dates: start: 1998
  56. COUMADIN [Suspect]
     Active Substance: WARFARIN SODIUM
     Dosage: 5 MG, ONCE DAILY (QD)
     Route: 048
     Dates: start: 2009
  57. CYTOMEL [Concomitant]
     Active Substance: LIOTHYRONINE SODIUM
     Indication: THYROID DISORDER

REACTIONS (23)
  - Cardiac arrest [Recovered/Resolved]
  - Basal cell carcinoma [Unknown]
  - Drug withdrawal convulsions [Recovered/Resolved]
  - Speech disorder [Recovered/Resolved]
  - Alopecia [Recovering/Resolving]
  - Somnolence [Unknown]
  - Intraductal papilloma of breast [Not Recovered/Not Resolved]
  - Ovarian cyst [Unknown]
  - Generalised tonic-clonic seizure [Recovered/Resolved]
  - Thrombosis [Recovered/Resolved]
  - Focal dyscognitive seizures [Unknown]
  - Off label use [Unknown]
  - Dehydration [Unknown]
  - International normalised ratio increased [Not Recovered/Not Resolved]
  - Seizure [Unknown]
  - Partial seizures [Recovered/Resolved]
  - Dizziness [Recovered/Resolved]
  - Eating disorder [Recovered/Resolved]
  - Eye disorder [Recovered/Resolved]
  - Overdose [Unknown]
  - Phyllodes tumour [Not Recovered/Not Resolved]
  - Hypoaesthesia [Unknown]
  - Fibroadenoma of breast [Not Recovered/Not Resolved]

NARRATIVE: CASE EVENT DATE: 2011
